FAERS Safety Report 7638136-4 (Version None)
Quarter: 2011Q3

REPORT INFORMATION
  Report Type: 
  Country: None (occurrence: None)
  Receive Date: 20110727
  Receipt Date: 20110719
  Transmission Date: 20111222
  Serious: Yes (Other)
  Sender: FDA-Public Use
  Company Number: US-ABBOTT-11P-163-0732219-00

PATIENT
  Sex: Female
  Weight: 56.296 kg

DRUGS (5)
  1. HUMIRA [Suspect]
     Route: 058
     Dates: start: 20110526, end: 20110526
  2. PREDNISONE [Suspect]
     Indication: CROHN'S DISEASE
     Route: 048
     Dates: start: 20090101, end: 20110511
  3. PREDNISONE [Concomitant]
     Route: 048
  4. HUMIRA [Suspect]
     Indication: CROHN'S DISEASE
     Dosage: (160 MG LOADING DOSE)
     Route: 058
     Dates: start: 20110514, end: 20110514
  5. HUMIRA [Suspect]
     Route: 058
     Dates: start: 20110609

REACTIONS (4)
  - URINARY RETENTION [None]
  - BLADDER PAIN [None]
  - DYSURIA [None]
  - BLADDER DILATATION [None]
